FAERS Safety Report 14185145 (Version 1)
Quarter: 2017Q4

REPORT INFORMATION
  Report Type: Spontaneous
  Country: US (occurrence: US)
  Receive Date: 20171111
  Receipt Date: 20171111
  Transmission Date: 20180321
  Serious: Yes (Disabling, Other)
  Sender: FDA-Public Use
  Company Number: None

PATIENT
  Age: 59 Year
  Sex: Female
  Weight: 54 kg

DRUGS (1)
  1. DOTAREM [Suspect]
     Active Substance: GADOTERATE MEGLUMINE
     Indication: NUCLEAR MAGNETIC RESONANCE IMAGING
     Dosage: ?          QUANTITY:2 INJECTION(S);OTHER FREQUENCY:2 TIMES IN A WEEK;?
     Route: 042
     Dates: start: 20171018, end: 20171025

REACTIONS (8)
  - Quality of life decreased [None]
  - Insomnia [None]
  - Skin burning sensation [None]
  - Headache [None]
  - Fatigue [None]
  - Tinnitus [None]
  - Arthralgia [None]
  - Toxicity to various agents [None]

NARRATIVE: CASE EVENT DATE: 20171025
